FAERS Safety Report 16954784 (Version 1)
Quarter: 2019Q4

REPORT INFORMATION
  Report Type: Spontaneous
  Country: US (occurrence: US)
  Receive Date: 20191024
  Receipt Date: 20191024
  Transmission Date: 20200122
  Serious: No
  Sender: FDA-Public Use
  Company Number: US-ASTRAZENECA-2019SF36926

PATIENT
  Sex: Female

DRUGS (2)
  1. TAGRISSO [Suspect]
     Active Substance: OSIMERTINIB
     Indication: NON-SMALL CELL LUNG CANCER
     Route: 048
     Dates: start: 201909
  2. BENADRYL [Concomitant]
     Active Substance: DIPHENHYDRAMINE HYDROCHLORIDE
     Indication: RASH

REACTIONS (4)
  - Rash [Recovered/Resolved with Sequelae]
  - Erythema [Recovered/Resolved]
  - Urticaria [Recovered/Resolved with Sequelae]
  - Pruritus [Recovering/Resolving]

NARRATIVE: CASE EVENT DATE: 201909
